FAERS Safety Report 17377285 (Version 1)
Quarter: 2020Q1

REPORT INFORMATION
  Report Type: Spontaneous
  Country: US (occurrence: US)
  Receive Date: 20200206
  Receipt Date: 20200206
  Transmission Date: 20200409
  Serious: No
  Sender: FDA-Public Use
  Company Number: US-PFIZER INC-2020046195

PATIENT
  Age: 74 Year
  Sex: Female
  Weight: 49.44 kg

DRUGS (5)
  1. EUCRISA [Suspect]
     Active Substance: CRISABOROLE
     Indication: ECZEMA
     Dosage: UNK UNK, AS NEEDED
     Route: 061
     Dates: start: 20170830
  2. EUCRISA [Suspect]
     Active Substance: CRISABOROLE
     Indication: DERMATITIS
  3. VASELINE [PARAFFIN] [Concomitant]
     Active Substance: PARAFFIN
     Dosage: UNK
  4. EUCRISA [Suspect]
     Active Substance: CRISABOROLE
     Indication: PSORIASIS
  5. CERAVE ITCH RELIEF MOISTURIZING [Concomitant]
     Active Substance: PRAMOXINE HYDROCHLORIDE
     Dosage: UNK

REACTIONS (3)
  - Expired product administered [Unknown]
  - Drug ineffective [Unknown]
  - Application site pruritus [Recovered/Resolved]

NARRATIVE: CASE EVENT DATE: 2017
